FAERS Safety Report 8390267-X (Version None)
Quarter: 2012Q2

REPORT INFORMATION
  Report Type: 
  Country: None (occurrence: None)
  Receive Date: 20120529
  Receipt Date: 20120523
  Transmission Date: 20120825
  Serious: Yes (Other)
  Sender: FDA-Public Use
  Company Number: ES-PFIZER INC-2012125394

PATIENT
  Sex: Female

DRUGS (5)
  1. ALPRAZOLAM [Suspect]
     Indication: AGORAPHOBIA
     Dosage: 0.5 MG, 2X/DAY
     Dates: start: 19910101
  2. SERTRALINE HYDROCHLORIDE [Concomitant]
     Dosage: UNK
  3. ALPRAZOLAM [Suspect]
     Dosage: UNK
  4. ALPRAZOLAM [Suspect]
     Dosage: 0.5 MG IN THE MORNING AND TWO TABLETS OF ALPRAZOLAM AT NIGHT
  5. NOBRITOL [Concomitant]
     Dosage: UNK

REACTIONS (6)
  - RESTLESSNESS [None]
  - SPEECH DISORDER [None]
  - BLOOD PRESSURE INCREASED [None]
  - ANXIETY [None]
  - PHARYNGEAL OEDEMA [None]
  - OEDEMA PERIPHERAL [None]
